FAERS Safety Report 7879867-0 (Version None)
Quarter: 2011Q4

REPORT INFORMATION
  Report Type: 
  Country: None (occurrence: None)
  Receive Date: 20111101
  Receipt Date: 20111016
  Transmission Date: 20120403
  Serious: Yes (Other)
  Sender: FDA-Public Use
  Company Number: JO-ROCHE-1005131

PATIENT
  Sex: Female

DRUGS (3)
  1. MYCOPHENOLATE MOFETIL (CELLCEPT) [Suspect]
     Indication: GRANULOMA
     Route: 048
     Dates: start: 20090601, end: 20110601
  2. MABTHERA [Suspect]
     Indication: GRANULOMA
     Route: 042
     Dates: start: 20100901, end: 20110401
  3. PREDNISOLONE [Concomitant]
     Indication: GRANULOMA

REACTIONS (3)
  - HAIR GROWTH ABNORMAL [None]
  - IMMUNOSUPPRESSION [None]
  - VIRAL INFECTION [None]
